FAERS Safety Report 9519753 (Version 1)
Quarter: 2013Q3

REPORT INFORMATION
  Report Type: Spontaneous
  Country: AR (occurrence: AR)
  Receive Date: 20130912
  Receipt Date: 20130912
  Transmission Date: 20140515
  Serious: Yes (Other)
  Sender: FDA-Public Use
  Company Number: AR-MPIJNJ-2013MPI000259

PATIENT
  Sex: 0

DRUGS (2)
  1. VELCADE [Suspect]
     Indication: COMPLICATIONS OF TRANSPLANT SURGERY
     Dosage: 1.3 MG/M2, UNK
  2. IMMUNOGLOBULIN [Suspect]
     Indication: COMPLICATIONS OF TRANSPLANT SURGERY
     Route: 042

REACTIONS (2)
  - Pneumonia cytomegaloviral [Unknown]
  - Off label use [Unknown]
